FAERS Safety Report 10162577 (Version 1)
Quarter: 2014Q2

REPORT INFORMATION
  Report Type: Spontaneous
  Country: US (occurrence: US)
  Receive Date: 20140509
  Receipt Date: 20140509
  Transmission Date: 20141212
  Serious: Yes (Other)
  Sender: FDA-Public Use
  Company Number: US-JNJFOC-20140502796

PATIENT
  Age: 53 Year
  Sex: Female
  Weight: 83.46 kg

DRUGS (2)
  1. REMICADE [Suspect]
     Indication: CROHN^S DISEASE
     Route: 042
     Dates: start: 201304
  2. CELEXA [Concomitant]
     Indication: ANXIETY
     Route: 048
     Dates: start: 1999

REACTIONS (5)
  - Lupus-like syndrome [Recovered/Resolved]
  - Swelling [Not Recovered/Not Resolved]
  - Arthralgia [Not Recovered/Not Resolved]
  - Joint lock [Not Recovered/Not Resolved]
  - Movement disorder [Not Recovered/Not Resolved]
